FAERS Safety Report 7604155-7 (Version None)
Quarter: 2011Q3

REPORT INFORMATION
  Report Type: 
  Country: None (occurrence: None)
  Receive Date: 20110712
  Receipt Date: 20110705
  Transmission Date: 20111222
  Serious: Yes (Hospitalization)
  Sender: FDA-Public Use
  Company Number: ES-JNJFOC-20110701731

PATIENT
  Age: 36 Year
  Sex: Female

DRUGS (1)
  1. ITRACONAZOLE [Suspect]
     Indication: ONYCHOMYCOSIS
     Route: 048

REACTIONS (1)
  - ATRIOVENTRICULAR BLOCK COMPLETE [None]
